FAERS Safety Report 8909681 (Version 1)
Quarter: 2012Q4

REPORT INFORMATION
  Report Type: Report from Study
  Country: DE (occurrence: DE)
  Receive Date: 20121114
  Receipt Date: 20121114
  Transmission Date: 20130627
  Serious: Yes (Other)
  Sender: FDA-Public Use
  Company Number: DE-B.I. PHARMACEUTICALS,INC./RIDGEFIELD-2012-DE-02677DE

PATIENT
  Age: 35 Year
  Sex: Female
  Weight: 95 kg

DRUGS (1)
  1. ATROVENT [Suspect]
     Dosage: strength: 500?g/2 ml; dose 10 ml
     Route: 048
     Dates: start: 20121108, end: 20121108

REACTIONS (3)
  - Medication error [Unknown]
  - Tachycardia [Unknown]
  - Hypertension [Unknown]
